FAERS Safety Report 21878653 (Version 2)
Quarter: 2023Q1

REPORT INFORMATION
  Report Type: Report from Study
  Country: US (occurrence: US)
  Receive Date: 20230118
  Receipt Date: 20230127
  Transmission Date: 20230417
  Serious: Yes (Other)
  Sender: FDA-Public Use
  Company Number: US-AMGEN-USASL2023005651

PATIENT
  Age: 78 Year
  Sex: Female

DRUGS (1)
  1. REPATHA [Suspect]
     Active Substance: EVOLOCUMAB
     Indication: Type IIa hyperlipidaemia
     Dosage: UNK
     Route: 065

REACTIONS (1)
  - Fibromuscular dysplasia [Not Recovered/Not Resolved]

NARRATIVE: CASE EVENT DATE: 20220401
